FAERS Safety Report 9162378 (Version 1)
Quarter: 2013Q1

REPORT INFORMATION
  Report Type: Spontaneous
  Country: IT (occurrence: None)
  Receive Date: 20130225
  Receipt Date: 20130225
  Transmission Date: 20140127
  Serious: Yes (Other)
  Sender: FDA-Public Use
  Company Number: AUR-APL-2013-01577

PATIENT
  Age: 37 Year
  Sex: Male

DRUGS (3)
  1. FINASTERIDE (FINASTERIDE) [Suspect]
     Indication: ANDROGENETIC ALOPECIA
     Route: 048
  2. LANSOPRAZOLE (LANSOPRAZOLE) [Concomitant]
  3. BROMAZEPAM (BROMAZEPAM) [Concomitant]

REACTIONS (1)
  - Azoospermia [None]
